FAERS Safety Report 12745274 (Version 1)
Quarter: 2016Q3

REPORT INFORMATION
  Report Type: Spontaneous
  Country: US (occurrence: US)
  Receive Date: 20160915
  Receipt Date: 20160915
  Transmission Date: 20161109
  Serious: Yes (Death, Hospitalization, Other)
  Sender: FDA-Public Use
  Company Number: US-SUN PHARMACEUTICAL INDUSTRIES LTD-2016US-124045

PATIENT
  Age: 59 Year
  Sex: Female

DRUGS (1)
  1. SALBUTAMOL [Suspect]
     Active Substance: ALBUTEROL
     Indication: CHRONIC OBSTRUCTIVE PULMONARY DISEASE
     Dosage: UNK
     Route: 045

REACTIONS (5)
  - Cardiac arrest [Fatal]
  - Ventricular tachycardia [Fatal]
  - Cardiogenic shock [Fatal]
  - Stress cardiomyopathy [Fatal]
  - Hypoxic-ischaemic encephalopathy [Fatal]
